FAERS Safety Report 16128094 (Version 1)
Quarter: 2019Q1

REPORT INFORMATION
  Report Type: Spontaneous
  Country: US (occurrence: US)
  Receive Date: 20190225
  Receipt Date: 20190225
  Transmission Date: 20190418
  Serious: Yes (Life-Threatening)
  Sender: FDA-Public Use
  Company Number: None

PATIENT

DRUGS (1)
  1. REPAGLINIDE 1MG TAB [Suspect]
     Active Substance: REPAGLINIDE
     Indication: BLOOD GLUCOSE INCREASED
     Dosage: ?          QUANTITY:1 PILL;?
     Route: 048
     Dates: start: 20190125, end: 20190128

REACTIONS (8)
  - Tremor [None]
  - Dysphagia [None]
  - Unevaluable event [None]
  - Swollen tongue [None]
  - Blood glucose increased [None]
  - Dizziness [None]
  - Dyspnoea [None]
  - Hyperhidrosis [None]
